FAERS Safety Report 5850493-8 (Version None)
Quarter: 2008Q3

REPORT INFORMATION
  Report Type: 
  Country: None (occurrence: None)
  Receive Date: 20080819
  Receipt Date: 20080807
  Transmission Date: 20090109
  Serious: Yes (Hospitalization)
  Sender: FDA-Public Use
  Company Number: GB-PFIZER INC-2008066681

PATIENT
  Age: 41 Year

DRUGS (19)
  1. ZITHROMAX [Suspect]
     Indication: URINARY TRACT INFECTION
  2. SIMVASTATIN [Interacting]
     Indication: BLOOD CHOLESTEROL INCREASED
     Route: 048
  3. ALL OTHER THERAPEUTIC PRODUCTS [Concomitant]
  4. ACETYLSALICYLIC ACID SRT [Concomitant]
  5. AZATHIOPRINE [Concomitant]
  6. BETAHISTINE [Concomitant]
  7. CEPHALEXIN [Concomitant]
  8. CYCLOSPORINE [Concomitant]
  9. DIAZEPAM [Concomitant]
  10. FLUDROCORTISONE ACETATE [Concomitant]
  11. FOLIC ACID [Concomitant]
  12. LANTUS [Concomitant]
  13. LANSOPRAZOLE [Concomitant]
  14. METOPROLOL TARTRATE [Concomitant]
  15. MOVICOL [Concomitant]
  16. NOVORAPID [Concomitant]
  17. PREDNISOLONE [Concomitant]
  18. QUININE SULPHATE [Concomitant]
  19. SODIUM BICARBONATE [Concomitant]

REACTIONS (2)
  - DRUG INTERACTION [None]
  - RHABDOMYOLYSIS [None]
